FAERS Safety Report 5012059-1 (Version None)
Quarter: 2006Q2

REPORT INFORMATION
  Report Type: 
  Country: None (occurrence: None)
  Receive Date: 20060526
  Receipt Date: 20060517
  Transmission Date: 20061013
  Serious: Yes (Hospitalization)
  Sender: FDA-Public Use
  Company Number: FR-GLAXOSMITHKLINE-B0424132A

PATIENT
  Age: 27 Year
  Sex: Female

DRUGS (2)
  1. TELZIR [Suspect]
     Route: 048
     Dates: start: 20060328, end: 20060404
  2. KALETRA [Concomitant]
     Route: 065
     Dates: start: 20060328

REACTIONS (3)
  - ABORTION SPONTANEOUS [None]
  - DRUG EXPOSURE DURING PREGNANCY [None]
  - PRURIGO [None]
